FAERS Safety Report 11400549 (Version 1)
Quarter: 2015Q3

REPORT INFORMATION
  Report Type: Spontaneous
  Country: BR (occurrence: BR)
  Receive Date: 20150820
  Receipt Date: 20150820
  Transmission Date: 20151125
  Serious: Yes (Death, Hospitalization, Other)
  Sender: FDA-Public Use
  Company Number: BR-PFIZER INC-2015107102

PATIENT
  Age: 67 Year
  Sex: Male

DRUGS (2)
  1. SUTENT [Suspect]
     Active Substance: SUNITINIB MALATE
     Indication: METASTATIC RENAL CELL CARCINOMA
     Dosage: 50 MG, CYCLIC (CYCLE 4 PER 2)
     Route: 048
     Dates: start: 20150120
  2. SUTENT [Suspect]
     Active Substance: SUNITINIB MALATE
     Dosage: 50 MG, CYCLIC (1 CAPSULE FOR 2 DAYS AND STOPS 1 DAYS)
     Dates: start: 201501

REACTIONS (15)
  - Haematoma [Unknown]
  - Death [Fatal]
  - Weight fluctuation [Not Recovered/Not Resolved]
  - Musculoskeletal pain [Unknown]
  - Asthenia [Unknown]
  - Renal impairment [Not Recovered/Not Resolved]
  - Platelet count decreased [Unknown]
  - Swelling [Not Recovered/Not Resolved]
  - Face injury [Unknown]
  - Epistaxis [Unknown]
  - Anaemia [Unknown]
  - Erythema [Unknown]
  - Ear injury [Unknown]
  - Fatigue [Unknown]
  - Dry skin [Unknown]

NARRATIVE: CASE EVENT DATE: 2015
